FAERS Safety Report 17583933 (Version 2)
Quarter: 2020Q1

REPORT INFORMATION
  Report Type: Report from Study
  Country: GB (occurrence: GB)
  Receive Date: 20200326
  Receipt Date: 20200331
  Transmission Date: 20200409
  Serious: Yes (Hospitalization)
  Sender: FDA-Public Use
  Company Number: GB-ROCHE-2569181

PATIENT
  Age: 58 Year
  Sex: Female
  Weight: 58 kg

DRUGS (15)
  1. GABAPENTIN. [Concomitant]
     Active Substance: GABAPENTIN
     Indication: NEURALGIA
     Dosage: /SEP/2016 TO 30/SEP/2016: 1200 MG, 01/DEC/2016: 1800 MG, 01/JUL/2016 TO SEP/2016: 2400 MG, 01/OCT/20
     Route: 065
     Dates: start: 201101, end: 20151230
  2. OCRELIZUMAB. [Suspect]
     Active Substance: OCRELIZUMAB
     Indication: PRIMARY PROGRESSIVE MULTIPLE SCLEROSIS
     Dosage: SUBSEQUENT DOSES WERE RECEIVED ON: 27/JAN/2016 (260 ML), 29/JUN/2016 (260 ML), 21/JUL/2016 (260 ML),
     Route: 042
     Dates: start: 20160113
  3. AMITRIPTYLINE [Concomitant]
     Active Substance: AMITRIPTYLINE
     Indication: BACK PAIN
     Route: 065
     Dates: start: 20150327
  4. GABAPENTIN. [Concomitant]
     Active Substance: GABAPENTIN
     Indication: NYSTAGMUS
  5. MODAFINIL. [Concomitant]
     Active Substance: MODAFINIL
     Indication: FATIGUE
     Route: 065
     Dates: start: 200912
  6. SIMVASTATIN. [Concomitant]
     Active Substance: SIMVASTATIN
     Indication: HYPERCHOLESTEROLAEMIA
     Dosage: 08/JAN/2019: ONGOING
     Route: 065
     Dates: start: 20140724, end: 20190108
  7. RAMIPRIL. [Concomitant]
     Active Substance: RAMIPRIL
     Indication: HYPERTENSION
     Dosage: 11/SEP/2018: ONGOING
     Route: 065
     Dates: start: 20140220, end: 20180910
  8. METHYLPREDNISOLONE. [Concomitant]
     Active Substance: METHYLPREDNISOLONE
     Indication: PREMEDICATION
     Dosage: 23/JUN/2011, 24/NOV/2011, 07/DEC/2011, 10/MAY/2012, 22/MAY/2012, 31/OCT/2012, 17/APR/2013, 30/APR/20
     Route: 065
     Dates: start: 20110609, end: 20110609
  9. GABAPENTIN. [Concomitant]
     Active Substance: GABAPENTIN
     Indication: MUSCLE SPASTICITY
  10. PARACETAMOL [Concomitant]
     Active Substance: ACETAMINOPHEN
     Indication: PREMEDICATION
     Dosage: 23/JUN/2011, 24/NOV/2011, 07/DEC/2011, 10/MAY/2012, 22/MAY/2012, 31/OCT/2012, 17/APR/2013, 30/APR/20
     Route: 065
  11. BACLOFEN. [Concomitant]
     Active Substance: BACLOFEN
     Indication: MUSCLE SPASTICITY
     Dosage: 27/JUN/2018 TO 28/NOV/2018: 81.56 MICROGRAM AND 29/NOV/2018: 73.4 MICROGRAM: ONGOING
     Route: 065
     Dates: start: 20171120, end: 20171124
  12. OMACOR [Concomitant]
     Active Substance: OMEGA-3-ACID ETHYL ESTERS
     Route: 065
     Dates: start: 200912
  13. OCRELIZUMAB. [Suspect]
     Active Substance: OCRELIZUMAB
     Indication: PRIMARY PROGRESSIVE MULTIPLE SCLEROSIS
     Dosage: TWO INTRAVENOUS (IV) INFUSIONS OF OCRELIZUMAB SEPARATED BY 14 DAYS IN EACH TREATMENT CYCLE OF 24 WEE
     Route: 042
     Dates: start: 20110609
  14. CETIRIZINE [Concomitant]
     Active Substance: CETIRIZINE HYDROCHLORIDE
     Indication: PREMEDICATION
     Dosage: 23/JUN/2011, 24/NOV/2011, 07/DEC/2011, 10/MAY/2012, 22/MAY/2012, 31/OCT/2012, 17/APR/2013, 30/APR/20
     Route: 065
     Dates: start: 20110609, end: 20110609
  15. EVENING PRIMROSE [Concomitant]
     Route: 065
     Dates: start: 201002

REACTIONS (1)
  - Urinary tract infection [Unknown]

NARRATIVE: CASE EVENT DATE: 20200229
